FAERS Safety Report 7496486-9 (Version None)
Quarter: 2011Q2

REPORT INFORMATION
  Report Type: 
  Country: None (occurrence: None)
  Receive Date: 20110523
  Receipt Date: 20110516
  Transmission Date: 20111010
  Serious: Yes (Other)
  Sender: FDA-Public Use
  Company Number: B0720588A

PATIENT
  Age: 37 Year
  Sex: Male
  Weight: 110 kg

DRUGS (1)
  1. ALLI [Suspect]
     Dosage: 60MG THREE TIMES PER DAY
     Route: 048
     Dates: start: 20100225, end: 20100304

REACTIONS (3)
  - HYPERAESTHESIA [None]
  - PARAESTHESIA [None]
  - NEURALGIA [None]
